FAERS Safety Report 23878648 (Version 1)
Quarter: 2024Q2

REPORT INFORMATION
  Report Type: Spontaneous
  Country: BE (occurrence: BE)
  Receive Date: 20240521
  Receipt Date: 20240521
  Transmission Date: 20240716
  Serious: Yes (Hospitalization)
  Sender: FDA-Public Use
  Company Number: BE-LEADINGPHARMA-BE-2024LEALIT00149

PATIENT
  Age: 30 Year
  Sex: Female

DRUGS (3)
  1. LORAZEPAM [Suspect]
     Active Substance: LORAZEPAM
     Indication: Product used for unknown indication
     Dosage: 40 TABLETS
     Route: 065
  2. PROTHIPENDYL [Suspect]
     Active Substance: PROTHIPENDYL
     Indication: Product used for unknown indication
     Dosage: 50 TABLETS
     Route: 065
  3. ZOLPIDEM [Suspect]
     Active Substance: ZOLPIDEM TARTRATE
     Indication: Product used for unknown indication
     Dosage: 10 TABLETS
     Route: 065

REACTIONS (1)
  - Intentional overdose [Unknown]
